FAERS Safety Report 13120370 (Version 1)
Quarter: 2017Q1

REPORT INFORMATION
  Report Type: Spontaneous
  Country: US (occurrence: US)
  Receive Date: 20170113
  Receipt Date: 20170113
  Transmission Date: 20170428
  Serious: No
  Sender: FDA-Public Use
  Company Number: None

PATIENT
  Age: 47 Year
  Sex: Female

DRUGS (3)
  1. IBRANCE [Suspect]
     Active Substance: PALBOCICLIB
     Indication: LUNG NEOPLASM MALIGNANT
  2. IBRANCE [Suspect]
     Active Substance: PALBOCICLIB
     Indication: BREAST CANCER
  3. IBRANCE [Suspect]
     Active Substance: PALBOCICLIB
     Indication: MUSCULOSKELETAL PAIN

REACTIONS (2)
  - Nasopharyngitis [None]
  - Pulmonary congestion [None]

NARRATIVE: CASE EVENT DATE: 20170112
